FAERS Safety Report 9529396 (Version 1)
Quarter: 2013Q1

REPORT INFORMATION
  Report Type: Spontaneous
  Country: US (occurrence: None)
  Receive Date: 20130318
  Receipt Date: 20130318
  Transmission Date: 20140127
  Serious: Yes (Other)
  Sender: FDA-Public Use
  Company Number: 1301USA004733

PATIENT
  Age: 23 Year
  Sex: Male

DRUGS (3)
  1. PEG-INTRON (PEGINTERFERON ALFA-2B) POWDER FOR INJECTION [Suspect]
     Indication: HEPATITIS C
     Dosage: UNK
     Dates: start: 20130108
  2. RIBAVIRIN (RIBAVIRIN) CAPSULE [Suspect]
     Indication: HEPATITIS C
     Dosage: UNK, ORAL
     Route: 048
     Dates: start: 20130108
  3. BOCEPREVIR [Suspect]
     Indication: HEPATITIS C
     Dosage: UNK, ORAL
     Route: 048
     Dates: start: 20130204

REACTIONS (11)
  - Dehydration [None]
  - Feeling cold [None]
  - Hypoaesthesia [None]
  - Headache [None]
  - Dysgeusia [None]
  - Irritability [None]
  - Asthenia [None]
  - Weight decreased [None]
  - Nausea [None]
  - Decreased appetite [None]
  - Vomiting [None]
